FAERS Safety Report 9614041 (Version 2)
Quarter: 2014Q4

REPORT INFORMATION
  Report Type: Report from Study
  Country: US (occurrence: US)
  Receive Date: 20131011
  Receipt Date: 20141225
  Transmission Date: 20150529
  Serious: Yes (Hospitalization)
  Sender: FDA-Public Use
  Company Number: US-ROCHE-1286600

PATIENT
  Sex: Female

DRUGS (22)
  1. SINGULAIR [Concomitant]
     Active Substance: MONTELUKAST SODIUM
     Dosage: 1 NIGHTLY
     Route: 048
  2. PROAIR HFA [Concomitant]
     Active Substance: ALBUTEROL SULFATE
     Dosage: ACTUATION AEROSOL INHALER
     Route: 065
  3. IBUPROFEN. [Concomitant]
     Active Substance: IBUPROFEN
     Route: 048
  4. ALPRAZOLAM. [Concomitant]
     Active Substance: ALPRAZOLAM
     Route: 065
  5. EPIPEN [Concomitant]
     Active Substance: EPINEPHRINE
     Dosage: 1000 DEVI 1 TIME ONLY
     Route: 065
  6. ISOSORBIDE MONONITRATE EXTENDED RELEASE [Concomitant]
     Active Substance: ISOSORBIDE MONONITRATE
     Route: 065
  7. ACETAMINOPHEN. [Concomitant]
     Active Substance: ACETAMINOPHEN
  8. ALBUTEROL. [Concomitant]
     Active Substance: ALBUTEROL
     Dosage: NEB EVERY 4 HOURS AS NEEDED
     Route: 065
  9. DUONEB [Concomitant]
     Active Substance: ALBUTEROL SULFATE\IPRATROPIUM BROMIDE
     Dosage: PER 3ML NEB SOLUTION
     Route: 065
  10. NEXIUM [Concomitant]
     Active Substance: ESOMEPRAZOLE MAGNESIUM
     Dosage: DELAYED RELEASED
     Route: 065
  11. FLONASE [Concomitant]
     Active Substance: FLUTICASONE PROPIONATE
     Dosage: PER ACT 2 SPRAYS EACH NOSTRIL TWICE A DAY
     Route: 065
  12. XOLAIR [Suspect]
     Active Substance: OMALIZUMAB
     Indication: ASTHMA
     Route: 065
  13. LOPRESSOR [Concomitant]
     Active Substance: METOPROLOL TARTRATE
     Dosage: 1 TABLET TWICE A DAY
     Route: 048
  14. CLOPIDOGREL [Concomitant]
     Active Substance: CLOPIDOGREL BISULFATE
     Route: 065
  15. HYDROMORPHONE [Concomitant]
     Active Substance: HYDROMORPHONE
     Route: 065
  16. PROVENTIL HFA [Concomitant]
     Active Substance: ALBUTEROL SULFATE
     Dosage: 2 PUFFS EVERY 4 HOURS AS NEEDED
     Route: 065
  17. NASONEX [Concomitant]
     Active Substance: MOMETASONE FUROATE
     Route: 065
  18. DILTIAZEM HYDROCHLORIDE EXTENDED RELEASE [Concomitant]
     Active Substance: DILTIAZEM HYDROCHLORIDE
     Dosage: EXTENDED RELEASE 24 HR
     Route: 048
  19. ADVAIR DISKUS [Concomitant]
     Active Substance: FLUTICASONE PROPIONATE\SALMETEROL XINAFOATE
     Dosage: INHALATION 500/50 MICROGRAM
     Route: 065
  20. LISINOPRIL. [Concomitant]
     Active Substance: LISINOPRIL
     Dosage: 1 TABLET
     Route: 065
  21. PREDNISONE. [Concomitant]
     Active Substance: PREDNISONE
     Dosage: 2 TABS FOR 7 DAYS, THEN 1 TAB FOR 7 DAYS
     Route: 065
  22. METFORMIN [Concomitant]
     Active Substance: METFORMIN HYDROCHLORIDE
     Route: 048

REACTIONS (26)
  - Cough [Unknown]
  - Dyspnoea [Unknown]
  - Wheezing [Unknown]
  - Upper-airway cough syndrome [Unknown]
  - Oropharyngeal pain [Unknown]
  - Chest discomfort [Recovering/Resolving]
  - Neck pain [Unknown]
  - Pain in extremity [Unknown]
  - Cardiac function test abnormal [Unknown]
  - Sinus congestion [Unknown]
  - Musculoskeletal pain [Unknown]
  - Joint range of motion decreased [Unknown]
  - Rhinitis allergic [Unknown]
  - Exposure during pregnancy [Unknown]
  - Productive cough [Unknown]
  - Myocardial necrosis marker increased [Unknown]
  - Sputum discoloured [Unknown]
  - Peak expiratory flow rate decreased [Unknown]
  - Nasal congestion [Unknown]
  - Obstruction [Unknown]
  - Obstructive airways disorder [Unknown]
  - Dyspnoea [Recovering/Resolving]
  - Exercise tolerance decreased [Unknown]
  - Dysphonia [Unknown]
  - Asthma [Unknown]
  - Chest pain [Recovering/Resolving]
